FAERS Safety Report 8390715-5 (Version None)
Quarter: 2012Q2

REPORT INFORMATION
  Report Type: 
  Country: None (occurrence: None)
  Receive Date: 20120515
  Receipt Date: 20120508
  Transmission Date: 20120825
  Serious: Yes (Hospitalization)
  Sender: FDA-Public Use
  Company Number: ACO_30292_2012

PATIENT
  Age: 66 Year
  Sex: Male
  Weight: 77.1 kg

DRUGS (7)
  1. AMPYRA [Suspect]
     Indication: GAIT DISTURBANCE
     Dosage: 10 MG, BID, ORAL
     Route: 048
     Dates: start: 20120401, end: 20120505
  2. COPAXONE [Concomitant]
  3. BACLOFEN [Concomitant]
  4. FLOMAX [Concomitant]
  5. POTASSIUM CHLORIDE [Concomitant]
  6. DITROPAN [Concomitant]
  7. PROSCAR [Concomitant]

REACTIONS (1)
  - CONVULSION [None]
